FAERS Safety Report 10701074 (Version 1)
Quarter: 2014Q4

REPORT INFORMATION
  Report Type: Spontaneous
  Country: US (occurrence: None)
  Receive Date: 20141229
  Receipt Date: 20141229
  Transmission Date: 20150529
  Serious: Yes (Hospitalization)
  Sender: FDA-Public Use
  Company Number: 2013AP010668

PATIENT
  Age: 52 Year
  Sex: Female

DRUGS (6)
  1. RISPERIDONE. [Concomitant]
     Active Substance: RISPERIDONE
  2. LORAZEPAM. [Concomitant]
     Active Substance: LORAZEPAM
  3. DIVALPROEX SODIUM DELAYED-RELEASE [Suspect]
     Active Substance: DIVALPROEX SODIUM
     Dosage: , UNKNOWN, UNKNOWN
  4. PHENYTOIN. [Concomitant]
     Active Substance: PHENYTOIN
  5. RISPERIDONE. [Concomitant]
     Active Substance: RISPERIDONE
  6. HALOPERIDOL. [Concomitant]
     Active Substance: HALOPERIDOL

REACTIONS (2)
  - Drug ineffective [None]
  - Hyperammonaemic encephalopathy [None]
